FAERS Safety Report 7358222-6 (Version None)
Quarter: 2011Q1

REPORT INFORMATION
  Report Type: 
  Country: None (occurrence: None)
  Receive Date: 20110317
  Receipt Date: 20110310
  Transmission Date: 20110831
  Serious: Yes (Life-Threatening, Hospitalization)
  Sender: FDA-Public Use
  Company Number: US-ROCHE-760319

PATIENT
  Age: 36 Year
  Sex: Female
  Weight: 115 kg

DRUGS (8)
  1. KLONOPIN [Suspect]
     Indication: DEPRESSION
     Dosage: OVERDOSE; TOOK HANDFUL OF DRUG
     Route: 048
     Dates: start: 20110214, end: 20110214
  2. CELLCEPT [Suspect]
     Route: 048
  3. FLEXERIL [Suspect]
     Route: 048
  4. KLONOPIN [Suspect]
     Dosage: OTHER INDICATIONS: PERSONALITY DISORDER, BIPOLAR DISORDER, SEVERE ANXIETY
     Route: 048
  5. FLEXERIL [Suspect]
     Dosage: OVERDOSE; TOOK HANDFUL OF DRUG
     Route: 048
     Dates: start: 20110214, end: 20110214
  6. PERCOCET [Concomitant]
     Indication: PAIN
     Dosage: STRENGTH: 10/325 MG; AS NEEDED EVERY 04 HOURS
     Route: 048
  7. LEXAPRO [Concomitant]
     Indication: DEPRESSION
     Route: 048
  8. LAMICTAL [Concomitant]
     Route: 048

REACTIONS (3)
  - DYSPHAGIA [None]
  - SUICIDE ATTEMPT [None]
  - OVERDOSE [None]
